FAERS Safety Report 4824171-8 (Version None)
Quarter: 2005Q4

REPORT INFORMATION
  Report Type: 
  Country: None (occurrence: None)
  Receive Date: 20051108
  Receipt Date: 20051025
  Transmission Date: 20060501
  Serious: Yes (Disabling)
  Sender: FDA-Public Use
  Company Number: USA0510111814

PATIENT
  Age: 71 Year
  Sex: Male

DRUGS (5)
  1. ALIMTA [Suspect]
     Indication: LYMPHOMA
     Dates: start: 20050602
  2. ALIMTA [Suspect]
     Indication: NON-SMALL CELL LUNG CANCER
     Dates: start: 20050602
  3. RADIATION THERAPY [Concomitant]
  4. VITAMIN B-12 [Concomitant]
  5. FOLIC ACID [Concomitant]

REACTIONS (3)
  - HERPES ZOSTER [None]
  - IMMUNE SYSTEM DISORDER [None]
  - NEURALGIA [None]
